FAERS Safety Report 4973391-0 (Version None)
Quarter: 2006Q2

REPORT INFORMATION
  Report Type: 
  Country: None (occurrence: None)
  Receive Date: 20060414
  Receipt Date: 20051020
  Transmission Date: 20061013
  Serious: Yes (Hospitalization)
  Sender: FDA-Public Use
  Company Number: US-MERCK-0510USA08436

PATIENT
  Age: 71 Year
  Sex: Female
  Weight: 95 kg

DRUGS (26)
  1. VIOXX [Suspect]
     Indication: ARTHRITIS
     Route: 048
     Dates: start: 19990621, end: 20040826
  2. EXTENDRYL JUNIOR [Concomitant]
     Indication: NASOPHARYNGITIS
     Route: 065
  3. NADOLOL [Concomitant]
     Route: 065
  4. POTASSIUM (UNSPECIFIED) [Concomitant]
     Indication: ROUTINE HEALTH MAINTENANCE
     Route: 065
  5. TUSSIONEX (CHLORPHENIRAMINE POLISTIREX (+) HYDROCODONE POLISTIREX) [Concomitant]
     Indication: COUGH
     Route: 065
  6. TUSSIONEX (CHLORPHENIRAMINE POLISTIREX (+) HYDROCODONE POLISTIREX) [Concomitant]
     Indication: NASOPHARYNGITIS
     Route: 065
  7. ZITHROMAX [Concomitant]
     Route: 065
  8. PREDNISONE [Concomitant]
     Indication: ARTHRITIS
     Route: 065
  9. PROVENTIL [Concomitant]
     Route: 065
  10. FLONASE [Concomitant]
     Indication: HYPERSENSITIVITY
     Route: 065
  11. CEPHALEXIN [Concomitant]
     Route: 065
  12. TEMAZEPAM [Concomitant]
     Indication: SLEEP DISORDER THERAPY
     Route: 065
  13. PATANOL [Concomitant]
     Indication: CONJUNCTIVITIS
     Route: 065
  14. MECLIZINE [Concomitant]
     Indication: ANTIEMETIC SUPPORTIVE CARE
     Route: 065
  15. MECLIZINE [Concomitant]
     Indication: MOTION SICKNESS
     Route: 065
  16. FLUOROPLEX [Concomitant]
     Indication: BREAST CANCER
     Route: 065
  17. GUIATUSS [Concomitant]
     Indication: COUGH
     Route: 065
  18. GUIATUSS [Concomitant]
     Indication: NASOPHARYNGITIS
     Route: 065
  19. BROMFENEX (NEW FORMULA) [Concomitant]
     Indication: COUGH
     Route: 065
  20. BROMFENEX (NEW FORMULA) [Concomitant]
     Indication: NASOPHARYNGITIS
     Route: 065
  21. AVELOX [Concomitant]
     Indication: SINUSITIS
     Route: 065
  22. SUDAL [Concomitant]
     Indication: NASOPHARYNGITIS
     Route: 065
  23. CEFZIL [Concomitant]
     Route: 065
  24. BIAXIN [Concomitant]
     Route: 065
  25. FLOVENT [Concomitant]
     Indication: HYPERSENSITIVITY
     Route: 065
  26. LEVAQUIN [Concomitant]
     Route: 065

REACTIONS (11)
  - CARDIAC FAILURE CONGESTIVE [None]
  - DILATATION VENTRICULAR [None]
  - DYSPNOEA [None]
  - HYPERLIPIDAEMIA [None]
  - HYPOTHYROIDISM [None]
  - PULMONARY EMBOLISM [None]
  - PULMONARY HYPERTENSION [None]
  - PULMONARY OEDEMA [None]
  - SUPRAVENTRICULAR TACHYCARDIA [None]
  - TRICUSPID VALVE INCOMPETENCE [None]
  - VENTRICULAR HYPERTROPHY [None]
